FAERS Safety Report 5665505-4 (Version None)
Quarter: 2008Q1

REPORT INFORMATION
  Report Type: 
  Country: None (occurrence: None)
  Receive Date: 20080314
  Receipt Date: 20071207
  Transmission Date: 20080703
  Serious: No
  Sender: FDA-Public Use
  Company Number: US-ABBOTT-07P-163-0427953-00

PATIENT
  Sex: Male
  Weight: 72.64 kg

DRUGS (10)
  1. HUMIRA [Suspect]
     Indication: CROHN'S DISEASE
     Route: 058
     Dates: start: 20070701, end: 20070701
  2. HUMIRA [Suspect]
     Route: 058
  3. HUMIRA [Suspect]
     Route: 058
  4. PREDNISONE TAB [Suspect]
     Indication: CROHN'S DISEASE
     Route: 048
     Dates: end: 20071101
  5. PREDNISONE TAB [Suspect]
     Route: 048
     Dates: start: 20071101
  6. MESALAMINE [Suspect]
     Indication: CROHN'S DISEASE
     Route: 048
     Dates: start: 20070701
  7. PETHIDINE HYDROCHLORIDE [Concomitant]
     Indication: DRUG USE FOR UNKNOWN INDICATION
     Route: 048
  8. AZATHIOPRINE [Concomitant]
     Indication: CROHN'S DISEASE
     Route: 048
  9. PRAMIPEXOLE DIHYDROCHLORIDE [Concomitant]
     Indication: RESTLESS LEGS SYNDROME
     Route: 048
  10. ESCITALOPRAM OXALATE [Concomitant]
     Indication: DRUG USE FOR UNKNOWN INDICATION
     Route: 048

REACTIONS (6)
  - BACK PAIN [None]
  - CROHN'S DISEASE [None]
  - HEADACHE [None]
  - INJECTION SITE PAIN [None]
  - STOMACH DISCOMFORT [None]
  - WEIGHT INCREASED [None]
